FAERS Safety Report 4637372-9 (Version None)
Quarter: 2005Q2

REPORT INFORMATION
  Report Type: 
  Country: None (occurrence: None)
  Receive Date: 20050325
  Receipt Date: 20041203
  Transmission Date: 20051028
  Serious: No
  Sender: FDA-Public Use
  Company Number: USA041285305

PATIENT
  Age: 83 Year
  Sex: Female

DRUGS (5)
  1. FORTEO [Suspect]
     Indication: BONE DISORDER
     Dates: start: 20041202
  2. LIPITOR [Concomitant]
  3. CALCIUM GLUCONATE [Concomitant]
  4. ZANTAC [Concomitant]
  5. COLESTID [Concomitant]

REACTIONS (1)
  - BACK PAIN [None]
